FAERS Safety Report 4818569-1 (Version None)
Quarter: 2005Q4

REPORT INFORMATION
  Report Type: 
  Country: None (occurrence: None)
  Receive Date: 20051031
  Receipt Date: 20051013
  Transmission Date: 20060501
  Serious: Yes (Hospitalization)
  Sender: FDA-Public Use
  Company Number: 12712

PATIENT
  Age: 23 Year
  Sex: Male

DRUGS (6)
  1. MORPHINE [Suspect]
     Indication: ANALGESIC EFFECT
     Dates: start: 20050831, end: 20050831
  2. DIPRIVAN [Suspect]
     Indication: ANAESTHESIA
     Dates: start: 20050831, end: 20050831
  3. CEFAZOLIN [Suspect]
     Dates: start: 20050831
  4. ULTIVA [Suspect]
     Indication: ANALGESIC EFFECT
     Dates: start: 20050831, end: 20050831
  5. PERFALGAN [Suspect]
     Indication: ANALGESIC EFFECT
     Dates: start: 20050831, end: 20050831
  6. AUGMENTIN '125' [Concomitant]

REACTIONS (4)
  - CHOLESTASIS [None]
  - HEPATITIS [None]
  - JAUNDICE [None]
  - PANCREATITIS ACUTE [None]
